FAERS Safety Report 8371045-4 (Version None)
Quarter: 2012Q2

REPORT INFORMATION
  Report Type: 
  Country: None (occurrence: None)
  Receive Date: 20120518
  Receipt Date: 20120509
  Transmission Date: 20120825
  Serious: Yes (Disabling)
  Sender: FDA-Public Use
  Company Number: US-ABBOTT-12P-163-0933883-00

PATIENT
  Sex: Female
  Weight: 124.85 kg

DRUGS (3)
  1. HUMIRA [Suspect]
     Indication: RHEUMATOID ARTHRITIS
     Route: 058
     Dates: start: 20060101
  2. NOVOLOG [Concomitant]
     Indication: TYPE 2 DIABETES MELLITUS
  3. LIPITOR [Concomitant]
     Indication: BLOOD CHOLESTEROL INCREASED

REACTIONS (3)
  - ROAD TRAFFIC ACCIDENT [None]
  - PARALYSIS [None]
  - ANXIETY [None]
